FAERS Safety Report 6379826-3 (Version None)
Quarter: 2009Q3

REPORT INFORMATION
  Report Type: 
  Country: None (occurrence: None)
  Receive Date: 20090915
  Receipt Date: 20090902
  Transmission Date: 20100115
  Serious: Yes (Death, Life-Threatening, Hospitalization, Other)
  Sender: FDA-Public Use
  Company Number: THYM-1001063

PATIENT
  Age: 61 Year
  Sex: Male

DRUGS (44)
  1. THYMOGLOBULIN [Suspect]
     Indication: STEM CELL TRANSPLANT
     Dosage: 1.5 MG/KG, QD, INTRAVENOUS
     Route: 042
     Dates: start: 20090413, end: 20090417
  2. CLOFARABINE (CLOFARABINE) [Concomitant]
  3. TOTAL LYMPHOID IRRADIATION (TOTAL LYMPHOID IRRADIATION) [Concomitant]
  4. VORICONAZOLE [Concomitant]
  5. MYCOPHENOLATE MOFETIL [Concomitant]
  6. MAALOX/DIPHENHYDRAMINE/LIDOCAINE (MAALOX/DIPHENHYDRAMINE/LIDOCAINE) [Concomitant]
  7. CYCLOSPORINE [Concomitant]
  8. VANCOMYCIN [Concomitant]
  9. AMLODIPINE [Concomitant]
  10. DOCUSATE SODIUM (DOCUSATE SODIUM) [Concomitant]
  11. SENNA (SENNA ALEXANDRINA) [Concomitant]
  12. ERYTHROMYCIN [Concomitant]
  13. AZTREONAM (AZTREONAM) [Concomitant]
  14. CAPHOSOL (CAPHOSOL) [Concomitant]
  15. CLOTRIMAZOLE [Concomitant]
  16. NYSTATIN [Concomitant]
  17. SODIUM FLUORIDE (SODIUM FLUORIDE) [Concomitant]
  18. OXYCODONE HCL [Concomitant]
  19. LORAZEPAM [Concomitant]
  20. GABAPENTIN [Concomitant]
  21. ACYCLOVIR [Concomitant]
  22. OMEPRAZOLE [Concomitant]
  23. TIMOLOL MALEATE [Concomitant]
  24. METOPROLOL SUCCINATE [Concomitant]
  25. FLUTICASONE PROPIONATE [Concomitant]
  26. DULOXETINE HYDROCHLORIDE [Concomitant]
  27. ALBUTEROL [Concomitant]
  28. FILGRASTIM (FILGRASTIM) [Concomitant]
  29. URSODIOL [Concomitant]
  30. SULFAMETHOXAZOLE AND TRIMETHOPRIM [Concomitant]
  31. ALUMINUM HYDROXIDE (ALUMINUM HYDROXIDE) [Concomitant]
  32. MEPERIDINE HCL [Concomitant]
  33. METHYLPREDNISOLONE SODIUM SUCCINATE [Concomitant]
  34. ONDANSETRON [Concomitant]
  35. PANTOPRAZOLE SODIUM [Concomitant]
  36. ACYCLOVIR [Concomitant]
  37. PHENYLEPHRINE (PHENYLEPHRINE) [Concomitant]
  38. CALCIUM GLUCONATE [Concomitant]
  39. PROPOFOL [Concomitant]
  40. COLLAGENASE OINTMENT (COLLAGENASE OINTMENT) [Concomitant]
  41. ERYTHROMYCIN [Concomitant]
  42. HALOPERIDOL [Concomitant]
  43. INSULIN (INSULIN) [Concomitant]
  44. PRESSORS (PRESSORS) [Concomitant]

REACTIONS (8)
  - ACUTE GRAFT VERSUS HOST DISEASE IN INTESTINE [None]
  - ACUTE GRAFT VERSUS HOST DISEASE IN SKIN [None]
  - DUODENAL ULCER HAEMORRHAGE [None]
  - ESCHERICHIA BACTERAEMIA [None]
  - PARAINFLUENZAE VIRUS INFECTION [None]
  - RENAL FAILURE ACUTE [None]
  - RESPIRATORY FAILURE [None]
  - SEPSIS [None]
